FAERS Safety Report 11264995 (Version 1)
Quarter: 2015Q3

REPORT INFORMATION
  Report Type: Spontaneous
  Country: CH (occurrence: CH)
  Receive Date: 20150713
  Receipt Date: 20150713
  Transmission Date: 20151125
  Serious: Yes (Other)
  Sender: FDA-Public Use
  Company Number: CH-PFIZER INC-2015228230

PATIENT
  Age: 62 Year
  Sex: Male

DRUGS (1)
  1. SUNITINIB MALATE. [Suspect]
     Active Substance: SUNITINIB MALATE
     Indication: METASTATIC RENAL CELL CARCINOMA
     Dosage: UNK, CYCLIC (DAILY, 4 WEEKS ON/2 WEEKS OFF)
     Dates: start: 20080314, end: 20080331

REACTIONS (2)
  - Tubulointerstitial nephritis [Unknown]
  - Renal failure [Recovered/Resolved]
